FAERS Safety Report 8958725 (Version 1)
Quarter: 2012Q4

REPORT INFORMATION
  Report Type: 
  Country: US (occurrence: US)
  Receive Date: 20121211
  Receipt Date: 20121211
  Transmission Date: 20130627
  Serious: Yes (Hospitalization)
  Sender: FDA-Public Use
  Company Number: US-ROXANE LABORATORIES, INC.-2012-RO-02531RO

PATIENT
  Age: 64 Year
  Sex: Female

DRUGS (3)
  1. NAPROXEN [Suspect]
     Indication: ARTHRALGIA
  2. HYDROCHLOROTHIAZIDE [Suspect]
     Indication: HYPERTENSION
  3. ANGIOTENSIN CONVERTING ENZYME INHIBITOR [Concomitant]
     Indication: HYPERTENSION

REACTIONS (3)
  - Tubulointerstitial nephritis [Unknown]
  - Renal failure acute [Recovered/Resolved]
  - Renal glycosuria [Recovered/Resolved]
